FAERS Safety Report 9165981 (Version 1)
Quarter: 2013Q1

REPORT INFORMATION
  Report Type: Report from Study
  Country: US (occurrence: US)
  Receive Date: 20130315
  Receipt Date: 20130315
  Transmission Date: 20140127
  Serious: Yes (Hospitalization)
  Sender: FDA-Public Use
  Company Number: US-GLAXOSMITHKLINE-A1015715A

PATIENT
  Age: 82 Year
  Sex: Female
  Weight: 79.1 kg

DRUGS (1)
  1. ELTROMBOPAG [Suspect]
     Indication: THROMBOCYTOPENIA
     Dosage: 200MG PER DAY
     Dates: start: 20130131

REACTIONS (1)
  - Pneumonia [Unknown]
